FAERS Safety Report 8086532-6 (Version None)
Quarter: 2012Q1

REPORT INFORMATION
  Report Type: 
  Country: None (occurrence: None)
  Receive Date: 20120128
  Receipt Date: 20110405
  Transmission Date: 20120608
  Serious: No
  Sender: FDA-Public Use
  Company Number: US-ABBOTT-11P-163-0716953-00

PATIENT
  Sex: Male
  Weight: 86.26 kg

DRUGS (2)
  1. HUMIRA [Suspect]
     Indication: PSORIASIS
  2. HUMIRA [Suspect]
     Indication: PSORIATIC ARTHROPATHY
     Dates: start: 20110113

REACTIONS (9)
  - VOMITING [None]
  - MALAISE [None]
  - PYREXIA [None]
  - HYPOTENSION [None]
  - TEMPERATURE INTOLERANCE [None]
  - GASTROINTESTINAL DISORDER [None]
  - CHILLS [None]
  - DYSPEPSIA [None]
  - MYALGIA [None]
